FAERS Safety Report 8758409 (Version 1)
Quarter: 2012Q4

REPORT INFORMATION
  Report Type: Spontaneous
  Country: US (occurrence: None)
  Receive Date: 20120828
  Receipt Date: 20120828
  Transmission Date: 20130627
  Serious: Yes (Hospitalization)
  Sender: FDA-Public Use
  Company Number: None

PATIENT
  Age: 51 Year
  Sex: Male
  Weight: 105.2 kg

DRUGS (11)
  1. CARBAMAZEPINE [Suspect]
     Indication: NEURALGIA
     Route: 048
     Dates: start: 20120621, end: 20120826
  2. ATORVASTATIN-LIPITOR [Concomitant]
  3. DALFAMPRIDINE-AMPYRA [Concomitant]
  4. GLIPIZIDE-GLIPIZIDE XL [Concomitant]
  5. HYDROCHLOROTHIAZIDE-HYDROCHLOROTHIAZIDE [Concomitant]
  6. IBUPROFEN-IBUPROFEN [Concomitant]
  7. INSULIN GLARGINE-LANTUS [Concomitant]
  8. INTERFERON BETA-1B-BETASERON [Concomitant]
  9. METFORMIN-METFORMIN [Concomitant]
  10. MOEXIPRIL-MOEXIPRIL [Concomitant]
  11. TIZANIDINE-TIZANIDINE [Concomitant]

REACTIONS (4)
  - Dysarthria [None]
  - Rash erythematous [None]
  - Pyrexia [None]
  - Hyponatraemia [None]
